FAERS Safety Report 24524682 (Version 1)
Quarter: 2024Q4

REPORT INFORMATION
  Report Type: Spontaneous
  Country: FR (occurrence: FR)
  Receive Date: 20241019
  Receipt Date: 20241019
  Transmission Date: 20250115
  Serious: Yes (Hospitalization)
  Sender: GENMAB
  Company Number: FR-GENMAB-2024-03834

PATIENT
  Age: 58 Year
  Sex: Male
  Weight: 59 kg

DRUGS (1)
  1. EPCORITAMAB [Suspect]
     Active Substance: EPCORITAMAB
     Indication: Chronic lymphocytic leukaemia
     Dosage: 96 MILLIGRAM, CYCLICAL (48 MG/ 2 FOIS PAR CYCLE)
     Route: 058
     Dates: start: 20240327, end: 20240814

REACTIONS (1)
  - Meningitis aseptic [Recovering/Resolving]

NARRATIVE: CASE EVENT DATE: 20240904
